FAERS Safety Report 7052837-0 (Version None)
Quarter: 2010Q4

REPORT INFORMATION
  Report Type: 
  Country: None (occurrence: None)
  Receive Date: 20101008
  Receipt Date: 20101001
  Transmission Date: 20110411
  Serious: Yes (Other)
  Sender: FDA-Public Use
  Company Number: 2010SP052693

PATIENT
  Age: 31 Year
  Sex: Female
  Weight: 52 kg

DRUGS (3)
  1. MICRODIOL (DESOGESTREL/ETHINYLESTRADIOL /00570801/) [Suspect]
     Indication: CONTRACEPTION
     Dosage: PO
     Route: 048
     Dates: start: 20010101
  2. PROFLAM (ACECLOFENAC) (ACECLOFENAC) [Suspect]
     Indication: OSTEOARTHRITIS
     Dosage: BID; PO
     Route: 048
     Dates: start: 20100925
  3. ARTROLIVE (GLUCOSAMINE SUIPHATE AND CONDROITIN SULPHATE) (GLUCOSAMINE [Suspect]
     Indication: OSTEOARTHRITIS
     Dosage: QD; PO
     Route: 048
     Dates: start: 20100928

REACTIONS (2)
  - DRUG INTERACTION [None]
  - OSTEOARTHRITIS [None]
